FAERS Safety Report 7731088-8 (Version None)
Quarter: 2011Q3

REPORT INFORMATION
  Report Type: 
  Country: None (occurrence: None)
  Receive Date: 20110906
  Receipt Date: 20110906
  Transmission Date: 20111222
  Serious: Yes (Death, Life-Threatening, Hospitalization, Disabling, Congenital Anomaly, Other)
  Sender: FDA-Public Use
  Company Number: None

PATIENT
  Age: 62 Year
  Sex: Female
  Weight: 79.378 kg

DRUGS (1)
  1. PRAMIPEXOLE DIHYDROCHLORIDE [Suspect]
     Indication: DYSKINESIA
     Dosage: 1/2 PILL
     Route: 048
     Dates: start: 20110901, end: 20110901

REACTIONS (8)
  - VISION BLURRED [None]
  - INSOMNIA [None]
  - RESTLESSNESS [None]
  - MUSCLE ATROPHY [None]
  - MUSCLE TWITCHING [None]
  - HEADACHE [None]
  - FEELING JITTERY [None]
  - COORDINATION ABNORMAL [None]
